FAERS Safety Report 16427558 (Version 2)
Quarter: 2024Q3

REPORT INFORMATION
  Report Type: Report from Study
  Country: FR (occurrence: FR)
  Receive Date: 20190613
  Receipt Date: 20240712
  Transmission Date: 20241017
  Serious: Yes (Death, Life-Threatening, Other)
  Sender: PFIZER
  Company Number: FR-TAKEDA-2016MPI000877

PATIENT
  Age: 35 Year
  Sex: Female
  Weight: 99 kg

DRUGS (8)
  1. ADCETRIS [Suspect]
     Active Substance: BRENTUXIMAB VEDOTIN
     Dosage: 174 MG, UNK
     Route: 042
     Dates: start: 20150528, end: 20150803
  2. EUPANTOL [Suspect]
     Active Substance: PANTOPRAZOLE SODIUM
     Dosage: UNK
     Route: 065
  3. CYTARABINE [Suspect]
     Active Substance: CYTARABINE
     Indication: Hodgkin^s disease
     Dosage: 200 MG/M2, UNK
     Route: 042
     Dates: start: 20151210
  4. ETOPOSIDE [Suspect]
     Active Substance: ETOPOSIDE
     Indication: Hodgkin^s disease
     Dosage: 100 MG/M2, UNK
     Route: 042
     Dates: start: 20151210
  5. ALKERAN [Suspect]
     Active Substance: MELPHALAN
     Indication: Hodgkin^s disease
     Dosage: 140 MG/M2, UNK
     Route: 042
     Dates: start: 20151210
  6. THIOTEPA [Suspect]
     Active Substance: THIOTEPA
     Indication: Hodgkin^s disease
     Dosage: 8 MG/KG, UNK
     Route: 042
     Dates: start: 20151210
  7. LAMICTAL [Suspect]
     Active Substance: LAMOTRIGINE
     Indication: Epilepsy
     Dosage: UNK
     Route: 048
  8. FYCOMPA [Concomitant]
     Active Substance: PERAMPANEL
     Dosage: UNK

REACTIONS (16)
  - Cardiac arrest [Fatal]
  - Shock haemorrhagic [Unknown]
  - Pulmonary hypertension [Unknown]
  - Cardiogenic shock [Unknown]
  - Congenital aplasia [Unknown]
  - Acute kidney injury [Unknown]
  - Pleural effusion [Unknown]
  - Cardiac failure [Unknown]
  - Respiratory distress [Unknown]
  - Stomatitis [Unknown]
  - Tachycardia [Unknown]
  - Stevens-Johnson syndrome [Unknown]
  - Septic shock [Unknown]
  - Anaemia [Unknown]
  - Pyrexia [Unknown]
  - Thrombocytopenia [Not Recovered/Not Resolved]

NARRATIVE: CASE EVENT DATE: 20151209
